FAERS Safety Report 7710676-9 (Version None)
Quarter: 2011Q3

REPORT INFORMATION
  Report Type: 
  Country: None (occurrence: None)
  Receive Date: 20110825
  Receipt Date: 20110823
  Transmission Date: 20111222
  Serious: No
  Sender: FDA-Public Use
  Company Number: US-PFIZER INC-2011195515

PATIENT
  Sex: Female
  Weight: 58.957 kg

DRUGS (1)
  1. ADVIL LIQUI-GELS [Suspect]
     Indication: MENSTRUAL DISCOMFORT
     Dosage: 200 MG, 1X/DAY
     Route: 048
     Dates: start: 20080101, end: 20110501

REACTIONS (1)
  - RASH [None]
